FAERS Safety Report 5513367-8 (Version None)
Quarter: 2007Q4

REPORT INFORMATION
  Report Type: 
  Country: None (occurrence: None)
  Receive Date: 20071112
  Receipt Date: 20071031
  Transmission Date: 20080405
  Serious: Yes (Hospitalization)
  Sender: FDA-Public Use
  Company Number: FR-PFIZER INC-2006044957

PATIENT
  Sex: Male
  Weight: 62.5 kg

DRUGS (3)
  1. SUTENT [Suspect]
     Indication: METASTATIC RENAL CELL CARCINOMA
     Route: 048
  2. SOLU-MEDROL [Concomitant]
     Route: 048
     Dates: start: 20060220, end: 20060320
  3. EFFERALGAN CODEINE [Concomitant]
     Route: 048

REACTIONS (1)
  - PLEURAL EFFUSION [None]
